FAERS Safety Report 5737742-1 (Version None)
Quarter: 2008Q2

REPORT INFORMATION
  Report Type: 
  Country: None (occurrence: None)
  Receive Date: 20080514
  Receipt Date: 20080509
  Transmission Date: 20081010
  Serious: Yes (Other)
  Sender: FDA-Public Use
  Company Number: B0520007A

PATIENT
  Age: 70 Year
  Sex: Male

DRUGS (1)
  1. AVAMYS [Suspect]
     Indication: RHINITIS ALLERGIC
     Route: 045
     Dates: start: 20080418, end: 20080418

REACTIONS (2)
  - DYSPNOEA [None]
  - HYPERSENSITIVITY [None]
